FAERS Safety Report 16446499 (Version 1)
Quarter: 2019Q2

REPORT INFORMATION
  Report Type: Spontaneous
  Country: US (occurrence: US)
  Receive Date: 20190508
  Receipt Date: 20190508
  Transmission Date: 20190711
  Serious: No
  Sender: FDA-Public Use
  Company Number: None

PATIENT
  Age: 68 Year
  Sex: Female
  Weight: 53.98 kg

DRUGS (2)
  1. TYMLOS [Suspect]
     Active Substance: ABALOPARATIDE
     Indication: HEPATITIS VIRAL
     Route: 058
     Dates: start: 201901
  2. TYMLOS [Suspect]
     Active Substance: ABALOPARATIDE
     Indication: HEPATITIS B
     Route: 058
     Dates: start: 201901

REACTIONS (1)
  - Arthralgia [None]
